FAERS Safety Report 21474699 (Version 1)
Quarter: 2022Q4

REPORT INFORMATION
  Report Type: Spontaneous
  Country: US (occurrence: US)
  Receive Date: 20221018
  Receipt Date: 20221018
  Transmission Date: 20230113
  Serious: No
  Sender: FDA-Public Use
  Company Number: US-CELLTRION INC.-2021US014175

PATIENT

DRUGS (4)
  1. INFLECTRA [Suspect]
     Active Substance: INFLIXIMAB-DYYB
     Indication: Colitis ulcerative
     Dosage: 10 MG/KG (700MG), Q 6 WEEKS
     Route: 042
     Dates: start: 20210619
  2. INFLECTRA [Suspect]
     Active Substance: INFLIXIMAB-DYYB
     Dosage: 10 MG/KG (700MG), Q 6 WEEKS
     Route: 042
     Dates: start: 20210731
  3. APRISO [Concomitant]
     Active Substance: MESALAMINE
     Indication: Colitis ulcerative
     Dosage: 0.375 X4 TAKEN DAILY
     Dates: start: 20140718
  4. CARISOPRODOL [Concomitant]
     Active Substance: CARISOPRODOL
     Indication: Muscle spasms
     Dosage: UNK, PRN
     Dates: start: 20200731

REACTIONS (2)
  - Rash [Recovered/Resolved with Sequelae]
  - Therapy change [Unknown]

NARRATIVE: CASE EVENT DATE: 20210710
